FAERS Safety Report 24906995 (Version 5)
Quarter: 2025Q3

REPORT INFORMATION
  Report Type: Spontaneous
  Country: US (occurrence: US)
  Receive Date: 20250130
  Receipt Date: 20250819
  Transmission Date: 20251020
  Serious: Yes (Other)
  Sender: SANOFI AVENTIS
  Company Number: US-SA-2025SA028636

PATIENT
  Age: 70 Year
  Sex: Female

DRUGS (4)
  1. DUPIXENT [Suspect]
     Active Substance: DUPILUMAB
     Indication: Eczema
     Route: 058
     Dates: start: 20241226, end: 20241226
  2. DUPIXENT [Suspect]
     Active Substance: DUPILUMAB
     Dosage: 300 MG, QOW
     Route: 058
     Dates: start: 20250102
  3. TRIAMCINOLONE [Concomitant]
     Active Substance: TRIAMCINOLONE
  4. NEURONTIN [Concomitant]
     Active Substance: GABAPENTIN

REACTIONS (11)
  - Cataract [Not Recovered/Not Resolved]
  - Central serous chorioretinopathy [Unknown]
  - Rash erythematous [Not Recovered/Not Resolved]
  - Throat irritation [Unknown]
  - Musculoskeletal discomfort [Unknown]
  - Eye swelling [Unknown]
  - Pruritus [Not Recovered/Not Resolved]
  - Skin burning sensation [Not Recovered/Not Resolved]
  - Injection site bruising [Not Recovered/Not Resolved]
  - Rash [Not Recovered/Not Resolved]
  - Inappropriate schedule of product administration [Unknown]

NARRATIVE: CASE EVENT DATE: 20240101
